FAERS Safety Report 7624096-9 (Version None)
Quarter: 2011Q3

REPORT INFORMATION
  Report Type: 
  Country: None (occurrence: None)
  Receive Date: 20110719
  Receipt Date: 20110719
  Transmission Date: 20111222
  Serious: Yes (Hospitalization)
  Sender: FDA-Public Use
  Company Number: None

PATIENT
  Age: 68 Year
  Sex: Male
  Weight: 135.6 kg

DRUGS (1)
  1. CLINDAMYCIN [Suspect]
     Dosage: 450 MG QID PO
     Route: 048
     Dates: start: 20110617, end: 20110623

REACTIONS (1)
  - RASH GENERALISED [None]
